FAERS Safety Report 23366458 (Version 1)
Quarter: 2024Q1

REPORT INFORMATION
  Report Type: Spontaneous
  Country: US (occurrence: US)
  Receive Date: 20240104
  Receipt Date: 20240104
  Transmission Date: 20240410
  Serious: Yes (Other)
  Sender: FDA-Public Use
  Company Number: US-PFIZER INC-202300455263

PATIENT
  Age: 67 Year
  Sex: Female

DRUGS (2)
  1. PAXLOVID [Suspect]
     Active Substance: NIRMATRELVIR\RITONAVIR
     Indication: COVID-19 treatment
     Dosage: UNK
     Dates: start: 20231212, end: 20231222
  2. LEVOXINE [LEVOTHYROXINE SODIUM] [Concomitant]
     Dosage: UNK

REACTIONS (5)
  - Tunnel vision [Recovering/Resolving]
  - Urticaria [Recovering/Resolving]
  - Faeces discoloured [Recovering/Resolving]
  - Blood urine present [Recovering/Resolving]
  - Hyperhidrosis [Recovering/Resolving]

NARRATIVE: CASE EVENT DATE: 20231220
